FAERS Safety Report 4325601-0 (Version None)
Quarter: 2004Q1

REPORT INFORMATION
  Report Type: 
  Country: None (occurrence: None)
  Receive Date: 20040323
  Receipt Date: 20040310
  Transmission Date: 20041129
  Serious: Yes (Death)
  Sender: FDA-Public Use
  Company Number: 2004-DE-01174GD (0)

PATIENT

DRUGS (1)
  1. METHOTREXATE [Suspect]
     Indication: RHEUMATOID ARTHRITIS
     Dosage: 7.5 MG ESCALATED TO 20 MG ONCE A WEEK, PO
     Route: 048

REACTIONS (2)
  - PULMONARY EMBOLISM [None]
  - SEPSIS [None]
